FAERS Safety Report 25465236 (Version 1)
Quarter: 2025Q2

REPORT INFORMATION
  Report Type: Report from Study
  Country: US (occurrence: US)
  Receive Date: 20250622
  Receipt Date: 20250622
  Transmission Date: 20250717
  Serious: Yes (Other)
  Sender: ABBVIE
  Company Number: US-ABBVIE-6329567

PATIENT
  Age: 38 Year
  Sex: Female

DRUGS (1)
  1. SKYRIZI [Suspect]
     Active Substance: RISANKIZUMAB-RZAA
     Indication: Psoriasis
     Route: 058
     Dates: start: 202411

REACTIONS (5)
  - Foot deformity [Unknown]
  - Hypersensitivity [Recovering/Resolving]
  - Wound [Not Recovered/Not Resolved]
  - Blister [Unknown]
  - Impaired healing [Unknown]

NARRATIVE: CASE EVENT DATE: 20250502
